FAERS Safety Report 4692177-8 (Version None)
Quarter: 2005Q2

REPORT INFORMATION
  Report Type: 
  Country: None (occurrence: None)
  Receive Date: 20050615
  Receipt Date: 20050601
  Transmission Date: 20051028
  Serious: Yes (Hospitalization, Other)
  Sender: FDA-Public Use
  Company Number: 2005073088

PATIENT
  Age: 67 Year
  Sex: Male
  Weight: 60 kg

DRUGS (10)
  1. CABERGOLINE [Suspect]
     Indication: PARKINSON'S DISEASE
     Dosage: SEE IMAGE
     Route: 048
     Dates: start: 20011001, end: 20011101
  2. CABERGOLINE [Suspect]
     Indication: PARKINSON'S DISEASE
     Dosage: SEE IMAGE
     Route: 048
     Dates: start: 20011101, end: 20011201
  3. CABERGOLINE [Suspect]
     Indication: PARKINSON'S DISEASE
     Dosage: SEE IMAGE
     Route: 048
     Dates: start: 20020701, end: 20021001
  4. CABERGOLINE [Suspect]
     Indication: PARKINSON'S DISEASE
     Dosage: SEE IMAGE
     Route: 048
     Dates: start: 20021001, end: 20050408
  5. SIFROL (PRAMIPEXOLE DIHYDROCHLORIDE) [Suspect]
     Indication: PARKINSON'S DISEASE
     Dosage: 0.5 MG (0.25 MG, BID), ORAL
     Route: 048
     Dates: start: 20011001, end: 20050411
  6. CARBIDOPA + LEVODOPA [Suspect]
     Indication: PARKINSON'S DISEASE
     Dosage: 400 MG (QID), ORAL
     Route: 048
     Dates: start: 20011001
  7. PERMAX [Suspect]
     Indication: PARKINSON'S DISEASE
     Dosage: 750 MCG (TID), ORAL
     Route: 048
     Dates: start: 20011001, end: 20050510
  8. EPADEL (ETHYL ICOSAPENTATE) [Concomitant]
  9. DEPAS (ETIZOLAM) [Concomitant]
  10. HALCION [Concomitant]

REACTIONS (6)
  - BLOOD CREATINE PHOSPHOKINASE INCREASED [None]
  - BLOOD TRIGLYCERIDES INCREASED [None]
  - HYPOTHYROIDISM [None]
  - MUSCLE SWELLING [None]
  - MUSCULAR DYSTROPHY [None]
  - OEDEMA PERIPHERAL [None]
